FAERS Safety Report 21971501 (Version 2)
Quarter: 2023Q1

REPORT INFORMATION
  Report Type: Report from Study
  Country: US (occurrence: US)
  Receive Date: 20230209
  Receipt Date: 20230309
  Transmission Date: 20230418
  Serious: Yes (Other)
  Sender: FDA-Public Use
  Company Number: US-ABBVIE-4299925

PATIENT
  Sex: Female

DRUGS (1)
  1. RINVOQ [Suspect]
     Active Substance: UPADACITINIB
     Indication: Psoriatic arthropathy
     Dosage: OFF THE RINVOQ FOR A ABOUT 6-8 WEEKS
     Route: 048
     Dates: start: 20220926

REACTIONS (2)
  - Shoulder operation [Recovering/Resolving]
  - Limb operation [Recovering/Resolving]
